FAERS Safety Report 23954043 (Version 1)
Quarter: 2024Q2

REPORT INFORMATION
  Report Type: Spontaneous
  Country: US (occurrence: None)
  Receive Date: 20240609
  Receipt Date: 20240609
  Transmission Date: 20240715
  Serious: No
  Sender: FDA-Public Use
  Company Number: US-ROCHE-3516036

PATIENT
  Sex: Female
  Weight: 49.7 kg

DRUGS (2)
  1. TNKASE [Suspect]
     Active Substance: TENECTEPLASE
     Indication: Cerebrovascular accident
     Route: 040
     Dates: start: 20240220
  2. METOPROLOL [Concomitant]
     Active Substance: METOPROLOL
     Indication: Hypertension
     Route: 048

REACTIONS (2)
  - Off label use [Unknown]
  - No adverse event [Unknown]

NARRATIVE: CASE EVENT DATE: 20240220
